FAERS Safety Report 21605884 (Version 1)
Quarter: 2022Q4

REPORT INFORMATION
  Report Type: Spontaneous
  Country: US (occurrence: None)
  Receive Date: 20221116
  Receipt Date: 20221116
  Transmission Date: 20230113
  Serious: No
  Sender: FDA-Public Use
  Company Number: None

PATIENT
  Age: 80 Year
  Sex: Female

DRUGS (1)
  1. PROLIA [Suspect]
     Active Substance: DENOSUMAB
     Indication: Anaemia
     Dosage: OTHER QUANTITY : BLOOD TRANSFUSION;?OTHER FREQUENCY : OTHER;?
     Route: 042
     Dates: start: 202209

REACTIONS (1)
  - Transfusion reaction [None]

NARRATIVE: CASE EVENT DATE: 20220914
